FAERS Safety Report 7422932-2 (Version None)
Quarter: 2011Q2

REPORT INFORMATION
  Report Type: 
  Country: None (occurrence: None)
  Receive Date: 20110414
  Receipt Date: 20110414
  Transmission Date: 20111010
  Serious: Yes (Life-Threatening)
  Sender: FDA-Public Use
  Company Number: None

PATIENT
  Sex: Male
  Weight: 104.3273 kg

DRUGS (1)
  1. NAPROXEN SODIUM [Suspect]
     Indication: ARTHRALGIA
     Dosage: 220 MG TABLET ONE A DAY PO
     Route: 048
     Dates: start: 20050101, end: 20101231

REACTIONS (1)
  - RENAL INJURY [None]
